FAERS Safety Report 11151666 (Version 1)
Quarter: 2015Q2

REPORT INFORMATION
  Report Type: Spontaneous
  Country: CN (occurrence: CN)
  Receive Date: 20150601
  Receipt Date: 20150601
  Transmission Date: 20150821
  Serious: Yes (Other)
  Sender: FDA-Public Use
  Company Number: CN-BAXTER-2015BAX027861

PATIENT
  Age: 4 Year
  Sex: Female
  Weight: 16 kg

DRUGS (5)
  1. 5% GLUCOSE  INJECTION [Suspect]
     Active Substance: DEXTROSE
     Indication: FLUID REPLACEMENT
     Route: 041
     Dates: start: 20140921, end: 20140925
  2. CEFTIZOXIME SODIUM [Suspect]
     Active Substance: CEFTIZOXIME SODIUM
     Indication: INFECTION
     Route: 041
     Dates: start: 20140921, end: 20140926
  3. XI YANPING INJECTION [Suspect]
     Active Substance: HERBALS
     Indication: INFECTION
     Route: 041
     Dates: start: 20140921, end: 20140925
  4. 5% GLUCOSE  INJECTION [Suspect]
     Active Substance: DEXTROSE
     Route: 041
     Dates: start: 20140921, end: 20140926
  5. AMBROXOL HYDROCHLORIDE GLUCOSE INJECTION [Suspect]
     Active Substance: AMBROXOL HYDROCHLORIDE
     Indication: SPUTUM ABNORMAL
     Route: 041
     Dates: start: 20140921, end: 20140925

REACTIONS (3)
  - Abdominal pain [Unknown]
  - Anaphylactic reaction [Unknown]
  - Dysphoria [Recovered/Resolved]

NARRATIVE: CASE EVENT DATE: 20140926
